FAERS Safety Report 10465017 (Version 4)
Quarter: 2014Q4

REPORT INFORMATION
  Report Type: Spontaneous
  Country: ES (occurrence: ES)
  Receive Date: 20140919
  Receipt Date: 20141031
  Transmission Date: 20150528
  Serious: Yes (Death, Hospitalization, Other)
  Sender: FDA-Public Use
  Company Number: ES-GLAXOSMITHKLINE-B1034856A

PATIENT
  Age: 79 Year
  Sex: Female

DRUGS (1)
  1. REVOLADE [Suspect]
     Active Substance: ELTROMBOPAG
     Indication: IMMUNE THROMBOCYTOPENIC PURPURA
     Dosage: START DOSE: 50 MG/DAY.EVENT DOSE: 25MG EVERY OTHER DAY
     Route: 048
     Dates: start: 20140811, end: 20140922

REACTIONS (7)
  - Skin necrosis [Unknown]
  - Paralysis [Unknown]
  - Fall [Unknown]
  - Hypotension [Unknown]
  - Contusion [Unknown]
  - Spontaneous haematoma [Fatal]
  - Haemorrhage [Fatal]

NARRATIVE: CASE EVENT DATE: 20140915
